FAERS Safety Report 8888966 (Version 2)
Quarter: 2012Q4

REPORT INFORMATION
  Report Type: 
  Country: AU (occurrence: AU)
  Receive Date: 20121106
  Receipt Date: 20121127
  Transmission Date: 20130627
  Serious: Yes (Disabling, Other)
  Sender: FDA-Public Use
  Company Number: PHHY2012AU101208

PATIENT
  Age: 51 Year
  Sex: Female

DRUGS (1)
  1. GILENYA [Suspect]
     Indication: MULTIPLE SCLEROSIS
     Dosage: 0.5 mg, daily
     Route: 048
     Dates: start: 20120918, end: 20120922

REACTIONS (5)
  - Optic neuropathy [Recovered/Resolved]
  - Vision blurred [Recovered/Resolved]
  - Vitreous floaters [Unknown]
  - Ocular hyperaemia [Unknown]
  - Eye pain [Unknown]
